FAERS Safety Report 5831444-9 (Version None)
Quarter: 2008Q3

REPORT INFORMATION
  Report Type: 
  Country: None (occurrence: None)
  Receive Date: 20080730
  Receipt Date: 20080723
  Transmission Date: 20090109
  Serious: Yes (Other)
  Sender: FDA-Public Use
  Company Number: CIO08012786

PATIENT
  Age: 80 Year
  Sex: Male
  Weight: 95.2 kg

DRUGS (6)
  1. VAPORUB(CAMPHOR 142.26 MG, CEDAR LEAF OIL 11.97 MG, EUCALYPTUS OIL 36. [Suspect]
     Dosage: 1 APPLIC, 2/DAY, TOPICAL
     Route: 061
     Dates: start: 20080123, end: 20080723
  2. GLUCOTROL [Concomitant]
  3. GLUCOPHAGE [Concomitant]
  4. AZMACORT [Concomitant]
  5. ^ZELOCORE^ [Concomitant]
  6. ^ZILATRAM^ [Concomitant]

REACTIONS (2)
  - ATRIOVENTRICULAR BLOCK SECOND DEGREE [None]
  - DRUG ADMINISTERED AT INAPPROPRIATE SITE [None]
